FAERS Safety Report 13049589 (Version 9)
Quarter: 2019Q3

REPORT INFORMATION
  Report Type: Report from Study
  Country: DE (occurrence: DE)
  Receive Date: 20161221
  Receipt Date: 20190718
  Transmission Date: 20191004
  Serious: Yes (Death, Hospitalization, Other)
  Sender: FDA-Public Use
  Company Number: DE-SA-2016SA228104

PATIENT
  Age: 34 Year
  Sex: Male

DRUGS (11)
  1. ALEMTUZUMAB [Suspect]
     Active Substance: ALEMTUZUMAB
     Indication: RELAPSING-REMITTING MULTIPLE SCLEROSIS
     Dosage: 12 MG, QD
     Route: 041
     Dates: start: 20160317, end: 20160318
  2. MOCLOBEMIDE [Concomitant]
     Active Substance: MOCLOBEMIDE
     Dosage: UNK UNK, UNK
     Route: 065
  3. TOPIRAMATE. [Concomitant]
     Active Substance: TOPIRAMATE
     Dosage: UNK UNK, UNK
     Route: 065
  4. PANTOPRAZOLE [Concomitant]
     Active Substance: PANTOPRAZOLE
     Dosage: UNK UNK, UNK
     Route: 065
  5. ALEMTUZUMAB [Suspect]
     Active Substance: ALEMTUZUMAB
     Dosage: 12 MG, QD
     Route: 041
     Dates: start: 20150202, end: 20150206
  6. ROMIPLOSTIM [Suspect]
     Active Substance: ROMIPLOSTIM
     Dosage: UNK
  7. ALEMTUZUMAB [Suspect]
     Active Substance: ALEMTUZUMAB
     Dosage: 12 MG, QD
     Route: 041
     Dates: start: 20160308, end: 20160310
  8. ACICLOVIR [Suspect]
     Active Substance: ACYCLOVIR
     Dosage: UNK UNK, UNK
     Route: 065
  9. ALEMTUZUMAB [Suspect]
     Active Substance: ALEMTUZUMAB
     Dosage: 12 MG, QD
     Route: 041
     Dates: start: 20160321, end: 20160321
  10. ROMIPLOSTIM [Suspect]
     Active Substance: ROMIPLOSTIM
     Dosage: 250 UG, UNK
     Route: 065
     Dates: start: 20160926, end: 20160926
  11. PARACETAMOL [Concomitant]
     Active Substance: ACETAMINOPHEN
     Dosage: UNK UNK, UNK
     Route: 065

REACTIONS (26)
  - Petechiae [Fatal]
  - Pyrexia [Unknown]
  - Herpes zoster [Unknown]
  - Heart rate increased [Not Recovered/Not Resolved]
  - Rash [Unknown]
  - Headache [Unknown]
  - Hallucination [Unknown]
  - Erythema [Not Recovered/Not Resolved]
  - Haematuria [Fatal]
  - Brain stem haemorrhage [Fatal]
  - Platelet count decreased [Fatal]
  - Epistaxis [Fatal]
  - Cerebellar haemorrhage [Fatal]
  - Gastrointestinal disorder [Unknown]
  - Bone pain [Unknown]
  - Immune thrombocytopenic purpura [Fatal]
  - Melaena [Fatal]
  - Anti-platelet antibody positive [Fatal]
  - Abdominal pain [Fatal]
  - Migraine [Unknown]
  - Haematoma [Fatal]
  - Haemorrhagic diathesis [Fatal]
  - Subarachnoid haemorrhage [Unknown]
  - Haemorrhage [Unknown]
  - Fatigue [Unknown]
  - Pigmentation disorder [Not Recovered/Not Resolved]

NARRATIVE: CASE EVENT DATE: 2016
